FAERS Safety Report 7560131-4 (Version None)
Quarter: 2011Q2

REPORT INFORMATION
  Report Type: 
  Country: None (occurrence: None)
  Receive Date: 20110621
  Receipt Date: 20101202
  Transmission Date: 20111010
  Serious: Yes (Hospitalization)
  Sender: FDA-Public Use
  Company Number: A0899185A

PATIENT
  Age: 49 Year
  Sex: Male

DRUGS (1)
  1. AVANDIA [Suspect]
     Indication: DIABETES MELLITUS
     Dosage: 10MG TWICE PER DAY
     Route: 048
     Dates: start: 20090101

REACTIONS (5)
  - DEMENTIA [None]
  - ARTERIOSCLEROSIS [None]
  - CAROTID ARTERY OCCLUSION [None]
  - ATRIOVENTRICULAR BLOCK [None]
  - SPEECH DISORDER [None]
